FAERS Safety Report 9773822 (Version 2)
Quarter: 2013Q4

REPORT INFORMATION
  Report Type: Spontaneous
  Country: US (occurrence: US)
  Receive Date: 20131220
  Receipt Date: 20131220
  Transmission Date: 20140711
  Serious: Yes (Other)
  Sender: FDA-Public Use
  Company Number: 2013SP002920

PATIENT
  Age: 53 Year
  Sex: Male
  Weight: 81.63 kg

DRUGS (7)
  1. VANCOMYCIN [Suspect]
     Indication: STAPHYLOCOCCAL INFECTION
     Dates: start: 201204, end: 2012
  2. VANCOMYCIN [Suspect]
     Indication: STAPHYLOCOCCAL INFECTION
     Dates: start: 201208, end: 2012
  3. ZYVOX [Concomitant]
     Indication: STAPHYLOCOCCAL INFECTION
     Route: 042
     Dates: start: 201201, end: 2012
  4. ZYVOX [Concomitant]
     Indication: STAPHYLOCOCCAL INFECTION
     Dates: start: 201303
  5. LOPRESSOR [Concomitant]
     Indication: TACHYCARDIA
  6. PREVACID [Concomitant]
     Indication: GASTROOESOPHAGEAL REFLUX DISEASE
  7. TOBRAMYCIN [Concomitant]
     Indication: PSEUDOMONAS INFECTION

REACTIONS (1)
  - Drug ineffective [Recovered/Resolved]
